FAERS Safety Report 9258423 (Version 2)
Quarter: 2013Q3

REPORT INFORMATION
  Report Type: Spontaneous
  Country: GR (occurrence: GR)
  Receive Date: 20130426
  Receipt Date: 20130816
  Transmission Date: 20140515
  Serious: Yes (Death, Hospitalization)
  Sender: FDA-Public Use
  Company Number: PHHY2013GR041200

PATIENT
  Age: 65 Year
  Sex: Male

DRUGS (4)
  1. MEROPENEM [Suspect]
     Indication: INFECTION
  2. CIPROFLOXACIN [Suspect]
     Indication: INFECTION
  3. CLINDAMYCIN [Suspect]
     Indication: INFECTION
  4. CORTISONE [Concomitant]
     Indication: SYSTEMIC LUPUS ERYTHEMATOSUS

REACTIONS (2)
  - Multi-organ failure [Fatal]
  - Dry gangrene [Unknown]
